FAERS Safety Report 8192850-3 (Version None)
Quarter: 2012Q1

REPORT INFORMATION
  Report Type: 
  Country: None (occurrence: None)
  Receive Date: 20120308
  Receipt Date: 20120227
  Transmission Date: 20120608
  Serious: Yes (Other)
  Sender: FDA-Public Use
  Company Number: CA-JNJFOC-20120213780

PATIENT
  Sex: Male
  Weight: 70.2 kg

DRUGS (4)
  1. HYDROMORPHONE HCL [Concomitant]
     Indication: ABDOMINAL PAIN
     Dosage: DOSAGE:1-2 TABLETS ONCE 4 HOURS PRN
     Route: 065
  2. REMICADE [Suspect]
     Indication: CROHN'S DISEASE
     Route: 042
     Dates: start: 20101118
  3. ALL OTHER THERAPEUTIC PRODUCTS [Concomitant]
     Indication: ABDOMINAL PAIN
     Route: 048
  4. REMICADE [Suspect]
     Route: 042
     Dates: start: 20120227

REACTIONS (6)
  - DYSPNOEA [None]
  - CHEST DISCOMFORT [None]
  - GOUT [None]
  - FLUSHING [None]
  - NAUSEA [None]
  - INFUSION RELATED REACTION [None]
